FAERS Safety Report 18660253 (Version 1)
Quarter: 2020Q4

REPORT INFORMATION
  Report Type: Spontaneous
  Country: US (occurrence: US)
  Receive Date: 20201224
  Receipt Date: 20201224
  Transmission Date: 20210114
  Serious: Yes (Other)
  Sender: FDA-Public Use
  Company Number: US-SHILPA MEDICARE LIMITED-SML-US-2020-00869

PATIENT
  Age: 62 Year
  Sex: Female

DRUGS (1)
  1. CAPECITABINE, UNKNOWN [Suspect]
     Active Substance: CAPECITABINE
     Indication: BREAST CANCER METASTATIC
     Route: 065

REACTIONS (3)
  - Pyogenic granuloma [Recovering/Resolving]
  - Onycholysis [Recovering/Resolving]
  - Paronychia [Recovering/Resolving]
